FAERS Safety Report 8893560 (Version 1)
Quarter: 2012Q4

REPORT INFORMATION
  Report Type: Report from Study
  Country: CA (occurrence: CA)
  Receive Date: 20121107
  Receipt Date: 20121107
  Transmission Date: 20130627
  Serious: Yes (Hospitalization)
  Sender: FDA-Public Use
  Company Number: CA-JNJFOC-20121016821

PATIENT
  Sex: Male
  Weight: 93.6 kg

DRUGS (10)
  1. REMICADE [Suspect]
     Indication: CROHN^S DISEASE
     Route: 042
     Dates: start: 20100206
  2. REMICADE [Suspect]
     Indication: CROHN^S DISEASE
     Dosage: 20th dose
     Route: 042
     Dates: start: 20120504
  3. REMICADE [Suspect]
     Indication: CROHN^S DISEASE
     Dosage: 23rd infusion
     Route: 042
     Dates: start: 20121027
  4. PREDNISONE [Concomitant]
     Dosage: tapering dose
     Route: 048
  5. DICLOFENAC [Concomitant]
     Indication: ARTHRITIS
     Route: 065
  6. COQ10 [Concomitant]
     Route: 065
  7. MULTIVITAMINS [Concomitant]
     Route: 065
  8. VITAMIN D [Concomitant]
     Route: 065
  9. IRON [Concomitant]
     Route: 065
  10. FISH OIL [Concomitant]
     Route: 065

REACTIONS (1)
  - Type 2 diabetes mellitus [Not Recovered/Not Resolved]
